FAERS Safety Report 8409847-8 (Version None)
Quarter: 2012Q2

REPORT INFORMATION
  Report Type: 
  Country: None (occurrence: None)
  Receive Date: 20120529
  Receipt Date: 20120516
  Transmission Date: 20120825
  Serious: Yes (Other)
  Sender: FDA-Public Use
  Company Number: 2010MA001665

PATIENT
  Sex: Female
  Weight: 100.6985 kg

DRUGS (38)
  1. BENTYL [Concomitant]
  2. NEXIUM [Concomitant]
  3. DIPHENHYDRAMINE HCL [Concomitant]
  4. PLAVIX [Concomitant]
  5. PREMARIN [Concomitant]
  6. XALATAN [Concomitant]
  7. HALCION [Concomitant]
  8. FISH OIL [Concomitant]
  9. AMBIEN CR [Concomitant]
  10. CARTIA XT [Concomitant]
  11. HALCYON [Concomitant]
  12. PHENYLEPHEDRINE [Concomitant]
  13. TRIAZOLAM [Concomitant]
  14. MULTI-VITAMINS [Concomitant]
  15. NASONEX [Concomitant]
  16. NEOMYCIN SULFATE TAB [Concomitant]
  17. VALIUM [Concomitant]
  18. LISINOPRIL [Concomitant]
  19. HYDROCODONE BITARTRATE AND ACETAMINOPHEN [Concomitant]
  20. PAROXETINE [Concomitant]
  21. TIMOLOL MALEATE [Concomitant]
  22. VICODIN [Concomitant]
  23. METOCLOPRAMIDE [Suspect]
     Indication: ABDOMINAL PAIN UPPER
     Dosage: 10 MG;PO
     Route: 048
     Dates: start: 20080215, end: 20091101
  24. METOCLOPRAMIDE [Suspect]
     Indication: GASTROOESOPHAGEAL REFLUX DISEASE
     Dosage: 10 MG;PO
     Route: 048
     Dates: start: 20080215, end: 20091101
  25. CARDIZEM CD [Concomitant]
  26. NAPROSYN [Concomitant]
  27. KLOR-CON [Concomitant]
  28. PAXIL [Concomitant]
  29. ALPRAZOLAM [Concomitant]
  30. BACTRIM [Concomitant]
  31. DICYCLOMINE [Concomitant]
  32. FUROSEMIDE [Concomitant]
  33. NAPROXEN [Concomitant]
  34. XANAX [Concomitant]
  35. CARDIZEM [Concomitant]
  36. AMBIEN [Concomitant]
  37. MYCELEX [Concomitant]
  38. RESCON [Concomitant]

REACTIONS (26)
  - TONGUE DISORDER [None]
  - FALL [None]
  - EPIGLOTTITIS [None]
  - TARDIVE DYSKINESIA [None]
  - BALANCE DISORDER [None]
  - VASCULAR INSUFFICIENCY [None]
  - INSOMNIA [None]
  - SOMNOLENCE [None]
  - TANDEM GAIT TEST ABNORMAL [None]
  - ABDOMINAL PAIN UPPER [None]
  - EAR INFECTION [None]
  - MUSCLE SPASMS [None]
  - IRRITABLE BOWEL SYNDROME [None]
  - ANXIETY [None]
  - TREMOR [None]
  - ABDOMINAL DISTENSION [None]
  - DIARRHOEA [None]
  - HEAD INJURY [None]
  - HYPERTENSION [None]
  - GASTROOESOPHAGEAL REFLUX DISEASE [None]
  - FATIGUE [None]
  - EAR PAIN [None]
  - NUCLEAR MAGNETIC RESONANCE IMAGING BRAIN ABNORMAL [None]
  - CHEST PAIN [None]
  - DIABETES MELLITUS [None]
  - GLOSSODYNIA [None]
